FAERS Safety Report 7534696-2 (Version None)
Quarter: 2011Q2

REPORT INFORMATION
  Report Type: 
  Country: None (occurrence: None)
  Receive Date: 20110609
  Receipt Date: 20110513
  Transmission Date: 20111010
  Serious: Yes (Hospitalization)
  Sender: FDA-Public Use
  Company Number: PHHY2011FR41767

PATIENT
  Sex: Female

DRUGS (7)
  1. MODECATE [Concomitant]
     Dosage: 25 MG, 4 DF EVERY 15 DAYS
  2. SULFARLEM [Concomitant]
     Dosage: 25 MG, BID
  3. RASILEZ [Suspect]
     Dosage: 150 MG, QD
     Route: 048
     Dates: end: 20110325
  4. ESIDRIX [Suspect]
     Dosage: 25 MG, QD
     Route: 048
     Dates: end: 20110325
  5. AMLODIPINE [Concomitant]
     Dosage: 10 MG, QD
  6. PARKINANE [Concomitant]
     Dosage: 5 MG, BID
  7. ACETAMINOPHEN [Concomitant]
     Dosage: 500 MG, UNK

REACTIONS (1)
  - HYPONATRAEMIA [None]
